FAERS Safety Report 5209692-0 (Version None)
Quarter: 2007Q1

REPORT INFORMATION
  Report Type: 
  Country: None (occurrence: None)
  Receive Date: 20070111
  Receipt Date: 20070101
  Transmission Date: 20070707
  Serious: Yes (Other)
  Sender: FDA-Public Use
  Company Number: GXKR2007IN00453

PATIENT
  Age: 28 Year
  Sex: Male

DRUGS (3)
  1. PREDNISOLONE ACETATE [Suspect]
     Indication: POSTOPERATIVE CARE
     Dosage: QID, INTRAOCULAR; BID, INTRAOCULAR
     Route: 031
  2. TOBRAMYCIN                   (TOBRAMYCIN) EYE DROPS [Concomitant]
  3. PROPARACAINE                (PROXYMETACAINE) [Concomitant]

REACTIONS (2)
  - INTRAOCULAR PRESSURE INCREASED [None]
  - KERATOPATHY [None]
